FAERS Safety Report 16359957 (Version 1)
Quarter: 2019Q2

REPORT INFORMATION
  Report Type: Spontaneous
  Country: FR (occurrence: FR)
  Receive Date: 20190528
  Receipt Date: 20190528
  Transmission Date: 20190711
  Serious: Yes (Hospitalization)
  Sender: FDA-Public Use
  Company Number: FR-TEVA-2019-FR-1055330

PATIENT
  Age: 68 Year
  Sex: Male

DRUGS (4)
  1. VENLAFAXINE [Suspect]
     Active Substance: VENLAFAXINE HYDROCHLORIDE
     Indication: DEPRESSION
     Dosage: 75 MILLIGRAM DAILY;
     Route: 048
     Dates: end: 20160828
  2. CORTANCYL [Suspect]
     Active Substance: PREDNISONE
     Indication: POLYCHONDRITIS
     Dosage: 35 MILLIGRAM DAILY; IN DECAY
     Route: 048
  3. NOVATREX (METHOTREXATE) [Suspect]
     Active Substance: METHOTREXATE SODIUM
     Indication: POLYCHONDRITIS
     Route: 048
     Dates: start: 20160512, end: 20160823
  4. WELLVONE [Suspect]
     Active Substance: ATOVAQUONE
     Indication: PROPHYLAXIS
     Route: 048
     Dates: start: 20160307, end: 20160827

REACTIONS (7)
  - Psychomotor skills impaired [Recovered/Resolved]
  - Hallucination, visual [Recovered/Resolved]
  - Apraxia [Recovered/Resolved]
  - Persecutory delusion [Recovered/Resolved]
  - Delirium [Recovered/Resolved]
  - Catatonia [Recovered/Resolved]
  - Hallucination, auditory [Recovered/Resolved]

NARRATIVE: CASE EVENT DATE: 201606
